FAERS Safety Report 14011619 (Version 1)
Quarter: 2017Q3

REPORT INFORMATION
  Report Type: Spontaneous
  Country: US (occurrence: US)
  Receive Date: 20170926
  Receipt Date: 20170926
  Transmission Date: 20171128
  Serious: Yes (Life-Threatening, Hospitalization)
  Sender: FDA-Public Use
  Company Number: US-LPDUSPRD-20171322

PATIENT
  Age: 29 Year
  Sex: Female

DRUGS (2)
  1. EPINEPHRINE INJECTION, USP (1071-25) [Suspect]
     Active Substance: EPINEPHRINE
     Dosage: 1 MG
     Route: 051
  2. BENADRYL [Suspect]
     Active Substance: DIPHENHYDRAMINE HYDROCHLORIDE
     Dosage: 50 MG
     Route: 051

REACTIONS (3)
  - Pulmonary oedema [Unknown]
  - Myocardial ischaemia [Unknown]
  - Left ventricular dysfunction [Unknown]
